FAERS Safety Report 14951366 (Version 1)
Quarter: 2018Q2

REPORT INFORMATION
  Report Type: Spontaneous
  Country: US (occurrence: US)
  Receive Date: 20180530
  Receipt Date: 20180530
  Transmission Date: 20180711
  Serious: No
  Sender: FDA-Public Use
  Company Number: US-009507513-1805USA007322

PATIENT
  Sex: Female

DRUGS (1)
  1. NEXPLANON [Suspect]
     Active Substance: ETONOGESTREL
     Dosage: RROD
     Route: 059

REACTIONS (2)
  - Complication associated with device [Unknown]
  - Complication of device removal [Unknown]

NARRATIVE: CASE EVENT DATE: 2017
